FAERS Safety Report 22955855 (Version 3)
Quarter: 2023Q4

REPORT INFORMATION
  Report Type: Spontaneous
  Country: PT (occurrence: PT)
  Receive Date: 20230919
  Receipt Date: 20231031
  Transmission Date: 20240110
  Serious: Yes (Life-Threatening, Hospitalization, Other)
  Sender: FDA-Public Use
  Company Number: PT-INFARMED-F202308-783

PATIENT
  Age: 65 Year
  Sex: Male
  Weight: 120 kg

DRUGS (1)
  1. RAMIPRIL [Suspect]
     Active Substance: RAMIPRIL
     Indication: Hypertension
     Dosage: 10 MILLIGRAM, ONCE A DAY
     Route: 048
     Dates: start: 20230827, end: 20230827

REACTIONS (2)
  - Angioedema [Recovering/Resolving]
  - Upper airway obstruction [Recovering/Resolving]

NARRATIVE: CASE EVENT DATE: 20230827
